FAERS Safety Report 8611743-8 (Version None)
Quarter: 2012Q3

REPORT INFORMATION
  Report Type: 
  Country: None (occurrence: None)
  Receive Date: 20120822
  Receipt Date: 20120817
  Transmission Date: 20120928
  Serious: Yes (Hospitalization)
  Sender: FDA-Public Use
  Company Number: GB-ROCHE-1089203

PATIENT
  Sex: Female
  Weight: 60.5 kg

DRUGS (7)
  1. PERTUZUMAB [Suspect]
     Dosage: LAST DOSE PRIOR TO SAE:30/JUL/2012
     Route: 042
     Dates: start: 20120730
  2. FILGRASTIM [Suspect]
     Indication: PRODUCT USED FOR UNKNOWN INDICATION
     Dates: start: 20120710, end: 20120710
  3. CORSODYL MOUTHWASH [Concomitant]
  4. PERTUZUMAB [Suspect]
     Indication: BREAST CANCER
     Dosage: LAST DOSE PRIOR TO SAE:09/JUL/2012
     Route: 042
     Dates: start: 20120709
  5. DOMPERIDONE [Concomitant]
     Dates: start: 20120716, end: 20120716
  6. TRASTUZUMAB EMTANSINE [Suspect]
     Indication: BREAST CANCER
     Dosage: LAST DOSE PRIOR TO SAE: 30/JUL/2012
     Route: 042
     Dates: start: 20120709
  7. DOCETAXEL [Suspect]
     Indication: BREAST CANCER
     Dosage: LAST DOSE PRIOR TO SAE:30/JUL/2012
     Route: 042
     Dates: start: 20120709

REACTIONS (3)
  - FATIGUE [None]
  - UTERINE POLYP [None]
  - THROMBOCYTOPENIA [None]
